FAERS Safety Report 8224591-8 (Version None)
Quarter: 2012Q1

REPORT INFORMATION
  Report Type: 
  Country: None (occurrence: None)
  Receive Date: 20120321
  Receipt Date: 20120314
  Transmission Date: 20120608
  Serious: Yes (Death, Hospitalization)
  Sender: FDA-Public Use
  Company Number: US-CELGENEUS-163-21880-12011153

PATIENT
  Sex: Male

DRUGS (8)
  1. REVLIMID [Suspect]
     Dosage: 10 MILLIGRAM
     Route: 048
     Dates: start: 20111222, end: 20120103
  2. CURCUMIN [Concomitant]
     Route: 065
  3. CREON [Concomitant]
     Route: 065
  4. VITAMIN D [Concomitant]
     Route: 065
  5. REVLIMID [Suspect]
     Dosage: 25 MILLIGRAM
     Route: 048
     Dates: start: 20111118, end: 20111101
  6. OMEPRAZOLE [Concomitant]
     Route: 065
  7. MAGNESIUM [Concomitant]
     Route: 065
  8. POTASSIUM [Concomitant]
     Route: 065

REACTIONS (1)
  - LYMPHOMA [None]
